FAERS Safety Report 5522235-7 (Version None)
Quarter: 2007Q4

REPORT INFORMATION
  Report Type: 
  Country: None (occurrence: None)
  Receive Date: 20071120
  Receipt Date: 20071115
  Transmission Date: 20080405
  Serious: Yes (Death, Hospitalization)
  Sender: FDA-Public Use
  Company Number: FR-JNJFOC-20071102497

PATIENT

DRUGS (5)
  1. HALDOL [Suspect]
     Indication: DRUG USE FOR UNKNOWN INDICATION
  2. CLOZAPINE [Suspect]
     Indication: DRUG USE FOR UNKNOWN INDICATION
  3. THIORIDAZINE [Suspect]
     Indication: DRUG USE FOR UNKNOWN INDICATION
  4. BENZATROPINE [Concomitant]
     Indication: DRUG USE FOR UNKNOWN INDICATION
  5. CARBIMAZOLE [Concomitant]
     Indication: DRUG USE FOR UNKNOWN INDICATION

REACTIONS (8)
  - COLONIC OBSTRUCTION [None]
  - CONSTIPATION [None]
  - GASTROINTESTINAL NECROSIS [None]
  - INTESTINAL ISCHAEMIA [None]
  - INTESTINAL PERFORATION [None]
  - PERITONITIS [None]
  - SYNCOPE [None]
  - VOLVULUS [None]
